FAERS Safety Report 7656129-8 (Version None)
Quarter: 2011Q3

REPORT INFORMATION
  Report Type: 
  Country: None (occurrence: None)
  Receive Date: 20110801
  Receipt Date: 20110722
  Transmission Date: 20111222
  Serious: Yes (Life-Threatening, Hospitalization, Other)
  Sender: FDA-Public Use
  Company Number: WAES 0911USA04724

PATIENT
  Age: 67 Year
  Sex: Male

DRUGS (8)
  1. METOPROLOL TARTRATE [Concomitant]
  2. PLACEBO [Suspect]
     Indication: ACUTE CORONARY SYNDROME
     Dosage: PO
     Route: 048
     Dates: start: 20080302
  3. RAMIPRIL [Concomitant]
  4. ALFUZOSIN HCL [Concomitant]
  5. VYTORIN [Suspect]
     Indication: ACUTE CORONARY SYNDROME
     Dosage: 10-40 MG/DAILY PO
     Route: 048
     Dates: start: 20080302
  6. PLACEBO [Suspect]
     Dosage: PO
     Route: 048
     Dates: start: 20080302
  7. LANTON [Concomitant]
  8. ASPIRIN [Concomitant]

REACTIONS (3)
  - BLADDER NEOPLASM [None]
  - BLADDER CANCER RECURRENT [None]
  - LUNG NEOPLASM MALIGNANT [None]
